FAERS Safety Report 19179875 (Version 1)
Quarter: 2021Q2

REPORT INFORMATION
  Report Type: Spontaneous
  Country: GB (occurrence: GB)
  Receive Date: 20210426
  Receipt Date: 20210426
  Transmission Date: 20210717
  Serious: Yes (Other)
  Sender: FDA-Public Use
  Company Number: GB-CELGENEUS-GBR-20210204850

PATIENT
  Sex: Female

DRUGS (10)
  1. IXAZOMIB [Suspect]
     Active Substance: IXAZOMIB
     Indication: PLASMA CELL MYELOMA
     Route: 048
     Dates: start: 20201111, end: 20210127
  2. IXAZOMIB [Suspect]
     Active Substance: IXAZOMIB
     Route: 048
  3. APIXABAN [Suspect]
     Active Substance: APIXABAN
     Route: 065
  4. DEXAMETHASONE. [Suspect]
     Active Substance: DEXAMETHASONE
     Indication: PLASMA CELL MYELOMA
     Route: 065
     Dates: start: 20201111, end: 20210127
  5. DEXAMETHASONE. [Suspect]
     Active Substance: DEXAMETHASONE
     Route: 048
  6. DEXAMETHASONE. [Suspect]
     Active Substance: DEXAMETHASONE
     Route: 048
  7. NINLARO [Concomitant]
     Active Substance: IXAZOMIB CITRATE
     Indication: PRODUCT USED FOR UNKNOWN INDICATION
     Route: 065
  8. LENALIDOMIDE [Suspect]
     Active Substance: LENALIDOMIDE
     Indication: PLASMA CELL MYELOMA
     Route: 048
     Dates: start: 20201111, end: 20210127
  9. ZOLEDRONATE [Concomitant]
     Active Substance: ZOLEDRONIC ACID
     Indication: PRODUCT USED FOR UNKNOWN INDICATION
     Route: 065
  10. APIXABAN [Suspect]
     Active Substance: APIXABAN
     Indication: PRODUCT USED FOR UNKNOWN INDICATION
     Route: 065
     Dates: end: 20210127

REACTIONS (9)
  - Sinus pain [Unknown]
  - Back pain [Unknown]
  - Platelet count decreased [Not Recovered/Not Resolved]
  - Plasma cell myeloma recurrent [Unknown]
  - Herpes zoster [Unknown]
  - Nasopharyngitis [Unknown]
  - Cytopenia [Unknown]
  - Lacrimation increased [Unknown]
  - Cough [Unknown]

NARRATIVE: CASE EVENT DATE: 20210127
